FAERS Safety Report 7208932-6 (Version None)
Quarter: 2011Q1

REPORT INFORMATION
  Report Type: 
  Country: None (occurrence: None)
  Receive Date: 20110104
  Receipt Date: 20101230
  Transmission Date: 20110831
  Serious: Yes (Death, Other)
  Sender: FDA-Public Use
  Company Number: PHHY2010MA86150

PATIENT
  Sex: Male
  Weight: 70 kg

DRUGS (1)
  1. GLEEVEC [Suspect]
     Indication: CHRONIC MYELOID LEUKAEMIA
     Dosage: 600MG DAILY
     Route: 048
     Dates: start: 20080408

REACTIONS (2)
  - CHRONIC MYELOID LEUKAEMIA [None]
  - DEATH [None]
